FAERS Safety Report 11779626 (Version 2)
Quarter: 2015Q4

REPORT INFORMATION
  Report Type: Spontaneous
  Country: PT (occurrence: PT)
  Receive Date: 20151125
  Receipt Date: 20151229
  Transmission Date: 20160304
  Serious: Yes (Other)
  Sender: FDA-Public Use
  Company Number: PT-TEVA-610386ISR

PATIENT
  Age: 72 Year
  Sex: Male
  Weight: 68 kg

DRUGS (4)
  1. EMEND [Concomitant]
     Active Substance: APREPITANT
     Indication: PROPHYLAXIS
     Route: 065
     Dates: start: 20150128, end: 20151008
  2. ORADEXON [Concomitant]
     Active Substance: DEXAMETHASONE
     Indication: PROPHYLAXIS
     Dosage: .0476 DOSAGE FORMS DAILY;
     Route: 065
     Dates: start: 20150128, end: 20151007
  3. CISPLATINA TEVA [Suspect]
     Active Substance: CISPLATIN
     Indication: GASTRIC NEOPLASM
     Route: 042
     Dates: start: 20150128, end: 20151008
  4. ONDANSETROM - LABESFAL [Concomitant]
     Indication: PROPHYLAXIS
     Dosage: .0476 DOSAGE FORMS DAILY;
     Route: 065
     Dates: start: 20150128, end: 20151008

REACTIONS (2)
  - Abdominal pain upper [Recovered/Resolved]
  - Feeling abnormal [Recovered/Resolved]

NARRATIVE: CASE EVENT DATE: 20151008
